FAERS Safety Report 23444068 (Version 2)
Quarter: 2024Q1

REPORT INFORMATION
  Report Type: Spontaneous
  Country: US (occurrence: US)
  Receive Date: 20240125
  Receipt Date: 20240207
  Transmission Date: 20240410
  Serious: Yes (Other)
  Sender: FDA-Public Use
  Company Number: US-009507513-2401USA014382

PATIENT
  Age: 62 Year
  Sex: Male
  Weight: 102.04 kg

DRUGS (1)
  1. KEYTRUDA [Suspect]
     Active Substance: PEMBROLIZUMAB
     Indication: Lung squamous cell carcinoma metastatic
     Dosage: UNK, Q3W
     Route: 042
     Dates: start: 20220202

REACTIONS (3)
  - Neuropathy peripheral [Unknown]
  - Lethargy [Unknown]
  - Feeling abnormal [Unknown]
